FAERS Safety Report 10614010 (Version 1)
Quarter: 2014Q4

REPORT INFORMATION
  Report Type: Report from Study
  Country: CA (occurrence: CA)
  Receive Date: 20141128
  Receipt Date: 20141128
  Transmission Date: 20150529
  Serious: Yes (Other)
  Sender: FDA-Public Use
  Company Number: CA-BRISTOL-MYERS SQUIBB COMPANY-21626064

PATIENT
  Age: 38 Year
  Sex: Female

DRUGS (17)
  1. ELMIRON [Concomitant]
     Active Substance: PENTOSAN POLYSULFATE SODIUM
  2. ALPHAGAN P [Concomitant]
     Active Substance: BRIMONIDINE TARTRATE
  3. COSOPT [Concomitant]
     Active Substance: DORZOLAMIDE HYDROCHLORIDE\TIMOLOL MALEATE
  4. PULMICORT TURBUHALER [Concomitant]
     Active Substance: BUDESONIDE
  5. CALCIUM [Concomitant]
     Active Substance: CALCIUM
  6. ORENCIA [Suspect]
     Active Substance: ABATACEPT
     Indication: RHEUMATOID ARTHRITIS
     Route: 042
     Dates: start: 20101210
  7. RAMIPRIL. [Concomitant]
     Active Substance: RAMIPRIL
  8. VEXOL [Concomitant]
     Active Substance: RIMEXOLONE
  9. METHOTREXATE [Concomitant]
     Active Substance: METHOTREXATE
  10. DIANE-35 [Concomitant]
     Active Substance: CYPROTERONE ACETATE\ETHINYL ESTRADIOL
  11. FOLIC ACID. [Concomitant]
     Active Substance: FOLIC ACID
  12. DOMPERIDONE [Concomitant]
     Active Substance: DOMPERIDONE
  13. CELEBREX [Concomitant]
     Active Substance: CELECOXIB
  14. NASONEX [Concomitant]
     Active Substance: MOMETASONE FUROATE
  15. DETROL [Concomitant]
     Active Substance: TOLTERODINE TARTRATE
  16. TRAMADOL HYDROCHLORIDE. [Concomitant]
     Active Substance: TRAMADOL HYDROCHLORIDE
  17. VITAMIN D [Concomitant]
     Active Substance: CHOLECALCIFEROL

REACTIONS (1)
  - Arthropathy [Not Recovered/Not Resolved]
